FAERS Safety Report 9284165 (Version 3)
Quarter: 2013Q2

REPORT INFORMATION
  Report Type: Spontaneous
  Country: BE (occurrence: BE)
  Receive Date: 20130510
  Receipt Date: 20130517
  Transmission Date: 20140414
  Serious: Yes (Life-Threatening, Hospitalization)
  Sender: FDA-Public Use
  Company Number: BE-ELI_LILLY_AND_COMPANY-BE201305002722

PATIENT
  Sex: Female

DRUGS (4)
  1. ALIMTA [Suspect]
     Indication: MESOTHELIOMA
     Dosage: 500 MG/M2, UNKNOWN
     Route: 042
  2. CISPLATINUM [Concomitant]
     Indication: MESOTHELIOMA
  3. FOLIC ACID [Concomitant]
     Indication: PREMEDICATION
     Dosage: UNK
  4. VITAMIN B12 [Concomitant]
     Indication: PREMEDICATION
     Route: 030

REACTIONS (2)
  - Anaphylactic shock [Recovered/Resolved]
  - Diabetic hyperglycaemic coma [Recovered/Resolved]
